FAERS Safety Report 5876423-0 (Version None)
Quarter: 2008Q3

REPORT INFORMATION
  Report Type: 
  Country: None (occurrence: None)
  Receive Date: 20080910
  Receipt Date: 20080901
  Transmission Date: 20090109
  Serious: Yes (Hospitalization)
  Sender: FDA-Public Use
  Company Number: FR-BRISTOL-MYERS SQUIBB COMPANY-14328710

PATIENT
  Age: 74 Year
  Sex: Male

DRUGS (2)
  1. ERBITUX [Suspect]
     Dosage: REINTRODUCED ON 20MAY08
     Route: 042
     Dates: start: 20070619
  2. CHEMOTHERAPY [Concomitant]
     Dates: start: 20070619

REACTIONS (2)
  - MOUTH HAEMORRHAGE [None]
  - MOUTH ULCERATION [None]
